FAERS Safety Report 7301324-0 (Version None)
Quarter: 2010Q4

REPORT INFORMATION
  Report Type: 
  Country: None (occurrence: None)
  Receive Date: 20101229
  Receipt Date: 20101004
  Transmission Date: 20110411
  Serious: No
  Sender: FDA-Public Use
  Company Number: 1000016616

PATIENT
  Age: 65 Year
  Sex: Male
  Weight: 93.4 kg

DRUGS (9)
  1. BYSTOLIC [Suspect]
     Indication: HYPERTENSION
     Dosage: ORAL
     Route: 048
     Dates: start: 20100909, end: 20100910
  2. LYRICA [Suspect]
     Indication: DIABETIC NEUROPATHY
     Dosage: 450 MG (150 MG, 3 IN 1 D), ORAL
     Route: 048
     Dates: start: 20100909, end: 20100911
  3. LYRICA [Suspect]
     Indication: DIABETIC NEUROPATHY
     Dosage: 200 MG (100 MG, 2 IN 1 D), ORAL
     Route: 048
     Dates: start: 20100912
  4. ENALAPRIL MALEATE [Concomitant]
  5. PRAZOSIN (PRAZOSIN) (PRAZOSIN) [Concomitant]
  6. ATENOLOL [Concomitant]
  7. WARFARIN SODIUM [Concomitant]
  8. ASPIRIN [Concomitant]
  9. GLUCOVANCE (GLYBURIDE, METFORMIN) (GLYBURIDE, METFORMIN) [Concomitant]

REACTIONS (8)
  - ASTHENIA [None]
  - CHEST DISCOMFORT [None]
  - CHEST PAIN [None]
  - DISORIENTATION [None]
  - DIZZINESS [None]
  - GAIT DISTURBANCE [None]
  - HEADACHE [None]
  - OEDEMA PERIPHERAL [None]
